APPROVED DRUG PRODUCT: GENTAMICIN SULFATE IN SODIUM CHLORIDE 0.9% IN PLASTIC CONTAINER
Active Ingredient: GENTAMICIN SULFATE
Strength: EQ 100MG BASE/100ML
Dosage Form/Route: INJECTABLE;INJECTION
Application: A062414 | Product #010
Applicant: HOSPIRA INC
Approved: Aug 15, 1983 | RLD: No | RS: No | Type: DISCN